FAERS Safety Report 18468203 (Version 1)
Quarter: 2020Q4

REPORT INFORMATION
  Report Type: Spontaneous
  Country: US (occurrence: US)
  Receive Date: 20201104
  Receipt Date: 20201104
  Transmission Date: 20210114
  Serious: Yes (Other)
  Sender: FDA-Public Use
  Company Number: None

PATIENT
  Age: 60 Year
  Sex: Female
  Weight: 94.5 kg

DRUGS (1)
  1. TRUE WASH 80% ETHYL ALCOHOL HAND SANITIZER [Suspect]
     Active Substance: ALCOHOL
     Indication: COVID-19 PROPHYLAXIS
     Dates: start: 20200530, end: 20200910

REACTIONS (10)
  - Pain [None]
  - Hepatic pain [None]
  - Toxicity to various agents [None]
  - Arthralgia [None]
  - Pain in extremity [None]
  - Discomfort [None]
  - Biliary colic [None]
  - Musculoskeletal pain [None]
  - Musculoskeletal stiffness [None]
  - Feeling abnormal [None]

NARRATIVE: CASE EVENT DATE: 20200815
